FAERS Safety Report 5678166-5 (Version None)
Quarter: 2008Q1

REPORT INFORMATION
  Report Type: 
  Country: None (occurrence: None)
  Receive Date: 20080319
  Receipt Date: 20080317
  Transmission Date: 20080703
  Serious: Yes (Hospitalization)
  Sender: FDA-Public Use
  Company Number: GRT 2007-12650

PATIENT
  Age: 72 Year
  Sex: Female
  Weight: 80 kg

DRUGS (7)
  1. LIDOCAINE [Suspect]
     Indication: NEURALGIA
     Dosage: 3 PATCHES A DAY
     Dates: start: 20070612, end: 20070628
  2. INSULIN INJECTION [Concomitant]
  3. INDAPAMIDE [Concomitant]
  4. BISOPROLOL FUMARATE [Concomitant]
  5. ACENOCOUMAROL [Concomitant]
  6. RAMIPRIL [Concomitant]
  7. ATORVASTATIN [Concomitant]

REACTIONS (3)
  - ANAEMIA [None]
  - FATIGUE [None]
  - POLYMYALGIA RHEUMATICA [None]
